FAERS Safety Report 10236093 (Version 1)
Quarter: 2014Q2

REPORT INFORMATION
  Report Type: Report from Study
  Country: US (occurrence: US)
  Receive Date: 20140613
  Receipt Date: 20140613
  Transmission Date: 20141212
  Serious: Yes (Other)
  Sender: FDA-Public Use
  Company Number: US-BAYER-2014-086370

PATIENT
  Sex: Female

DRUGS (1)
  1. MIRENA [Suspect]
     Indication: CONTRACEPTION
     Dosage: 20 MCG/24HR, CONT
     Route: 015

REACTIONS (6)
  - Habitual abortion [None]
  - Increased appetite [None]
  - Weight increased [None]
  - Weight loss poor [None]
  - Amenorrhoea [None]
  - Hypomenorrhoea [None]
